FAERS Safety Report 8929187 (Version 1)
Quarter: 2012Q4

REPORT INFORMATION
  Report Type: Spontaneous
  Country: JP (occurrence: None)
  Receive Date: 20121119
  Receipt Date: 20121119
  Transmission Date: 20130627
  Serious: Yes (Life-Threatening, Hospitalization, Other)
  Sender: FDA-Public Use
  Company Number: DSA_60917_2012

PATIENT
  Age: 50 Year
  Sex: Female
  Weight: 135 kg

DRUGS (10)
  1. RENIVACE [Suspect]
     Indication: HYPERTENSION
     Route: 048
     Dates: start: 20071105, end: 20120320
  2. EQUA [Concomitant]
  3. ALLOPURINOL [Concomitant]
  4. ARTIST [Concomitant]
  5. OLMETEC [Concomitant]
  6. NIFEDIPINE [Concomitant]
  7. ONEALFA [Concomitant]
  8. FUROSEMIDE [Concomitant]
  9. CLINORIL [Concomitant]
  10. REBAMIPIDE [Concomitant]

REACTIONS (6)
  - Pancreatitis acute [None]
  - Dialysis [None]
  - Hypertension [None]
  - Weight increased [None]
  - Renal impairment [None]
  - Pancreas infection [None]
